FAERS Safety Report 22344694 (Version 1)
Quarter: 2023Q2

REPORT INFORMATION
  Report Type: Spontaneous
  Country: CH (occurrence: None)
  Receive Date: 20230519
  Receipt Date: 20230519
  Transmission Date: 20230722
  Serious: Yes (Other)
  Sender: FDA-Public Use
  Company Number: CH-ROCHE-3351145

PATIENT

DRUGS (2)
  1. OCREVUS [Suspect]
     Active Substance: OCRELIZUMAB
     Indication: Multiple sclerosis
     Route: 065
  2. KESIMPTA [Concomitant]
     Active Substance: OFATUMUMAB

REACTIONS (3)
  - Hypersensitivity [Unknown]
  - Hemiparesis [Unknown]
  - Fatigue [Unknown]
